FAERS Safety Report 16758637 (Version 1)
Quarter: 2019Q3

REPORT INFORMATION
  Report Type: Report from Study
  Country: ES (occurrence: ES)
  Receive Date: 20190830
  Receipt Date: 20190830
  Transmission Date: 20191005
  Serious: Yes (Hospitalization)
  Sender: FDA-Public Use
  Company Number: ES-TEVA-2019-ES-1098829

PATIENT
  Age: 78 Year
  Sex: Female

DRUGS (6)
  1. SIMVASTATINA (1023A) [Concomitant]
     Active Substance: SIMVASTATIN
     Indication: DYSLIPIDAEMIA
     Dosage: 20 MILLIGRAM PER DAY
     Route: 048
     Dates: start: 20100407, end: 20180420
  2. EMCONCOR COR 2,5 MG COMPRIMIDOS RECUBIERTOS CON PELICULA , 100 COMPRI [Interacting]
     Active Substance: BISOPROLOL
     Indication: HYPERTENSION
     Dosage: 2.5 MILLIGRAM PER DAY
     Route: 048
     Dates: start: 20151211, end: 20180420
  3. OMEPRAZOL (2141A) [Concomitant]
     Active Substance: OMEPRAZOLE
     Indication: PROPHYLAXIS
  4. ENALAPRIL MALEATO (2142MA) [Suspect]
     Active Substance: ENALAPRIL MALEATE
     Indication: HYPERTENSION
     Dosage: 10 MILLIGRAM PER DAY
     Route: 048
     Dates: start: 20100407
  5. GLIMEPIRIDA (7395A) [Interacting]
     Active Substance: GLIMEPIRIDE
     Indication: TYPE 2 DIABETES MELLITUS
     Dosage: 4 MILLIGRAM PER DAY
     Route: 048
     Dates: start: 20100407, end: 20180420
  6. JANUMET [Interacting]
     Active Substance: METFORMIN HYDROCHLORIDE\SITAGLIPTIN PHOSPHATE
     Indication: TYPE 2 DIABETES MELLITUS
     Dosage: 2 DOSAGE FORMS PER DAY
     Route: 048
     Dates: start: 20161124, end: 20180420

REACTIONS (2)
  - Drug interaction [Unknown]
  - Hypoglycaemia [Recovered/Resolved]

NARRATIVE: CASE EVENT DATE: 20180420
